FAERS Safety Report 12587307 (Version 2)
Quarter: 2016Q3

REPORT INFORMATION
  Report Type: Spontaneous
  Country: JP (occurrence: JP)
  Receive Date: 20160725
  Receipt Date: 20160817
  Transmission Date: 20161109
  Serious: No
  Sender: FDA-Public Use
  Company Number: JP-009507513-1607JPN009582

PATIENT
  Sex: Female

DRUGS (2)
  1. REBETOL [Suspect]
     Active Substance: RIBAVIRIN
     Dosage: DAILY DOSE UNKNOWN
     Route: 048
  2. SOVALDI [Suspect]
     Active Substance: SOFOSBUVIR
     Dosage: DAILY DOSE UNKNOWN
     Route: 048

REACTIONS (1)
  - Renal function test abnormal [Unknown]
